FAERS Safety Report 9155655 (Version 1)
Quarter: 2013Q1

REPORT INFORMATION
  Report Type: Spontaneous
  Country: US (occurrence: US)
  Receive Date: 20130311
  Receipt Date: 20130311
  Transmission Date: 20140127
  Serious: Yes (Other)
  Sender: FDA-Public Use
  Company Number: US-ASTRAZENECA-2013SE14301

PATIENT
  Sex: Female

DRUGS (3)
  1. ATACAND [Suspect]
     Route: 048
  2. ATACAND [Suspect]
     Route: 048
     Dates: end: 201302
  3. VITAMIN D [Concomitant]

REACTIONS (7)
  - Pleural effusion [Unknown]
  - Bradycardia [Unknown]
  - Arrhythmia [Unknown]
  - Dyspnoea [Unknown]
  - Abdominal distension [Unknown]
  - Discomfort [Unknown]
  - Food intolerance [Unknown]
